FAERS Safety Report 8420416-6 (Version None)
Quarter: 2012Q2

REPORT INFORMATION
  Report Type: 
  Country: None (occurrence: None)
  Receive Date: 20120607
  Receipt Date: 20120604
  Transmission Date: 20120825
  Serious: Yes (Life-Threatening, Other)
  Sender: FDA-Public Use
  Company Number: FR-ELI_LILLY_AND_COMPANY-FR201206000530

PATIENT
  Sex: Male
  Weight: 84 kg

DRUGS (11)
  1. RASILEZ [Concomitant]
  2. HYPERIUM [Concomitant]
  3. ISOPTIN [Concomitant]
  4. BYETTA [Suspect]
     Indication: TYPE 2 DIABETES MELLITUS
     Dosage: 10 UG, QD
     Dates: start: 20100319, end: 20120313
  5. XALATAN [Concomitant]
  6. PANTOPRAZOLE [Concomitant]
  7. GLUCOPHAGE [Concomitant]
     Indication: TYPE 2 DIABETES MELLITUS
  8. DIAMICRON [Concomitant]
     Indication: TYPE 2 DIABETES MELLITUS
  9. POTASSIUM CHLORIDE [Concomitant]
  10. PERMIXON [Concomitant]
  11. PRAVIGARD PAC (COPACKAGED) [Concomitant]

REACTIONS (3)
  - PANCREATIC DUCT DILATATION [None]
  - PANCREATIC CARCINOMA [None]
  - GLYCOSYLATED HAEMOGLOBIN INCREASED [None]
